FAERS Safety Report 24464693 (Version 1)
Quarter: 2024Q4

REPORT INFORMATION
  Report Type: Report from Study
  Country: US (occurrence: US)
  Receive Date: 20241018
  Receipt Date: 20241018
  Transmission Date: 20250115
  Serious: No
  Sender: ROCHE
  Company Number: US-ROCHE-3502365

PATIENT
  Age: 37 Year
  Sex: Female

DRUGS (6)
  1. XOLAIR [Suspect]
     Active Substance: OMALIZUMAB
     Indication: Idiopathic urticaria
     Dosage: MOST RECENT DOSE: 25/JAN/2024
     Route: 058
  2. XOLAIR [Suspect]
     Active Substance: OMALIZUMAB
  3. HYDROXYZINE [Concomitant]
     Active Substance: HYDROXYZINE HYDROCHLORIDE
  4. PREDNISONE [Concomitant]
     Active Substance: PREDNISONE
  5. LAMOTRIGINE [Concomitant]
     Active Substance: LAMOTRIGINE
  6. AMPHETAMINE [Concomitant]
     Active Substance: AMPHETAMINE

REACTIONS (2)
  - Swelling [Unknown]
  - Abdominal pain upper [Unknown]
